FAERS Safety Report 9316971 (Version 1)
Quarter: 2013Q2

REPORT INFORMATION
  Report Type: Spontaneous
  Country: US (occurrence: US)
  Receive Date: 20130530
  Receipt Date: 20130530
  Transmission Date: 20140414
  Serious: No
  Sender: FDA-Public Use
  Company Number: US-NOVEN-12US004610

PATIENT
  Sex: Female
  Weight: 18.14 kg

DRUGS (3)
  1. DAYTRANA [Suspect]
     Indication: ATTENTION DEFICIT/HYPERACTIVITY DISORDER
     Dosage: 15 MG, (1/2 PATCH DAILY)
     Route: 062
     Dates: start: 2011
  2. DAYTRANA [Suspect]
     Dosage: 10 MG, UNK
     Route: 062
  3. DAYTRANA [Suspect]
     Dosage: 15 MG, UNK

REACTIONS (10)
  - Pruritus [Not Recovered/Not Resolved]
  - Disturbance in social behaviour [Recovered/Resolved]
  - Abnormal behaviour [Recovered/Resolved]
  - Crying [Not Recovered/Not Resolved]
  - Application site erythema [Not Recovered/Not Resolved]
  - Decreased appetite [Not Recovered/Not Resolved]
  - Depressed mood [Not Recovered/Not Resolved]
  - Wrong technique in drug usage process [Not Recovered/Not Resolved]
  - Incorrect drug administration duration [Not Recovered/Not Resolved]
  - Product quality issue [Not Recovered/Not Resolved]
